FAERS Safety Report 5084592-8 (Version None)
Quarter: 2006Q3

REPORT INFORMATION
  Report Type: 
  Country: None (occurrence: None)
  Receive Date: 20060818
  Receipt Date: 20060818
  Transmission Date: 20061208
  Serious: Yes (Hospitalization)
  Sender: FDA-Public Use
  Company Number: None

PATIENT
  Age: 84 Year
  Sex: Female
  Weight: 65.5901 kg

DRUGS (6)
  1. WARFARIN SODIUM [Suspect]
     Indication: ARRHYTHMIA
     Dosage: 2.5 MG  PO  QHS  (THERAPY DATES: PRIOR TO ADMISSION)
     Route: 048
  2. PRAVACHOL [Concomitant]
  3. LEXAPRO [Concomitant]
  4. AMIODARONE [Concomitant]
  5. RAZADYNE [Concomitant]
  6. SALT TABS [Concomitant]

REACTIONS (2)
  - CEREBRAL HAEMORRHAGE [None]
  - LOSS OF CONSCIOUSNESS [None]
